FAERS Safety Report 12878110 (Version 4)
Quarter: 2016Q4

REPORT INFORMATION
  Report Type: Report from Study
  Country: US (occurrence: US)
  Receive Date: 20161024
  Receipt Date: 20161111
  Transmission Date: 20170207
  Serious: Yes (Death, Other)
  Sender: FDA-Public Use
  Company Number: US-BAYER-2015-090859

PATIENT
  Age: 68 Year
  Sex: Female
  Weight: 57 kg

DRUGS (9)
  1. ADEMPAS [Suspect]
     Active Substance: RIOCIGUAT
     Indication: PULMONARY HYPERTENSION
     Dosage: 2 MG, TID
     Route: 048
  2. TRACLEER [Concomitant]
     Active Substance: BOSENTAN
     Dosage: UNK
  3. ADEMPAS [Suspect]
     Active Substance: RIOCIGUAT
     Indication: PULMONARY HYPERTENSION
     Dosage: 2.5 MG, TID
     Route: 048
  4. OPSUMIT [Concomitant]
     Active Substance: MACITENTAN
     Dosage: UNK
  5. APIXABAN [Concomitant]
     Active Substance: APIXABAN
     Dosage: UNK
  6. UPTRAVI [Concomitant]
     Active Substance: SELEXIPAG
     Dosage: 600 ?G, BID
     Route: 048
  7. ADEMPAS [Suspect]
     Active Substance: RIOCIGUAT
     Indication: PULMONARY HYPERTENSION
     Dosage: UNK
     Dates: start: 20141215
  8. ADEMPAS [Suspect]
     Active Substance: RIOCIGUAT
     Indication: PULMONARY HYPERTENSION
     Dosage: 2 MG, TID
     Route: 048
  9. UPTRAVI [Concomitant]
     Active Substance: SELEXIPAG
     Dosage: 200 ?G, BID
     Route: 048

REACTIONS (7)
  - Headache [None]
  - Death [Fatal]
  - Emotional disorder [Unknown]
  - Dyspnoea [None]
  - Depressed mood [Unknown]
  - Diarrhoea [Unknown]
  - Oxygen supplementation [None]

NARRATIVE: CASE EVENT DATE: 20161030
